FAERS Safety Report 18942604 (Version 5)
Quarter: 2021Q3

REPORT INFORMATION
  Report Type: Spontaneous
  Country: US (occurrence: US)
  Receive Date: 20210225
  Receipt Date: 20210701
  Transmission Date: 20211014
  Serious: No
  Sender: FDA-Public Use
  Company Number: NVSC2021US037757

PATIENT
  Sex: Female

DRUGS (1)
  1. COSENTYX [Suspect]
     Active Substance: SECUKINUMAB
     Indication: PRODUCT USED FOR UNKNOWN INDICATION
     Dosage: UNK
     Route: 065

REACTIONS (6)
  - Stomatitis [Recovered/Resolved]
  - Dry mouth [Recovered/Resolved]
  - Pharyngeal swelling [Unknown]
  - Oral candidiasis [Recovered/Resolved]
  - Hypersensitivity [Unknown]
  - Throat irritation [Unknown]
